FAERS Safety Report 22635986 (Version 1)
Quarter: 2023Q2

REPORT INFORMATION
  Report Type: Spontaneous
  Country: US (occurrence: None)
  Receive Date: 20230621
  Receipt Date: 20230621
  Transmission Date: 20230722
  Serious: No
  Sender: FDA-Public Use
  Company Number: None

PATIENT
  Sex: Male

DRUGS (9)
  1. ABIRATERONE ACETATE [Suspect]
     Active Substance: ABIRATERONE ACETATE
     Dosage: FREQUENCY : DAILY;?
     Route: 048
  2. CALCIUM [Concomitant]
     Active Substance: CALCIUM
  3. CEFTRIAXONE [Concomitant]
     Active Substance: CEFTRIAXONE
  4. FLOMAX [Concomitant]
     Active Substance: TAMSULOSIN HYDROCHLORIDE
  5. LASIX [Concomitant]
     Active Substance: FUROSEMIDE
  6. LIDOCAINE-PRILOCAINE CREAM [Concomitant]
  7. LUPRON [Concomitant]
     Active Substance: LEUPROLIDE ACETATE
  8. OXYCODONE [Concomitant]
     Active Substance: OXYCODONE
  9. PREDNISONE [Concomitant]
     Active Substance: PREDNISONE

REACTIONS (2)
  - Disease progression [None]
  - Prostatic specific antigen increased [None]
